FAERS Safety Report 8375117-X (Version None)
Quarter: 2012Q2

REPORT INFORMATION
  Report Type: 
  Country: None (occurrence: None)
  Receive Date: 20120521
  Receipt Date: 20120506
  Transmission Date: 20120825
  Serious: Yes (Death, Life-Threatening)
  Sender: FDA-Public Use
  Company Number: JP-BAXTER-2012BH003338

PATIENT
  Age: 78 Year
  Sex: Male
  Weight: 45 kg

DRUGS (4)
  1. PLETAL [Concomitant]
     Route: 048
  2. FEIBA [Suspect]
     Route: 042
     Dates: start: 20120121, end: 20120121
  3. FEIBA [Suspect]
     Indication: HAEMOSTASIS
     Route: 042
     Dates: start: 20120119, end: 20120120
  4. NEORAL [Concomitant]
     Indication: IMMUNOSUPPRESSION
     Route: 048

REACTIONS (1)
  - DISSEMINATED INTRAVASCULAR COAGULATION [None]
